FAERS Safety Report 24724492 (Version 1)
Quarter: 2024Q4

REPORT INFORMATION
  Report Type: Other
  Country: US (occurrence: US)
  Receive Date: 20241212
  Receipt Date: 20241212
  Transmission Date: 20250115
  Serious: Yes (Hospitalization, Other)
  Sender: BIONPHARMA INC.
  Company Number: US-Bion-014470

PATIENT
  Age: 68 Year
  Sex: Male

DRUGS (1)
  1. IBUPROFEN [Suspect]
     Active Substance: IBUPROFEN
     Indication: Osteoarthritis

REACTIONS (3)
  - Glomerulonephritis minimal lesion [Unknown]
  - Acute kidney injury [Unknown]
  - Renal tubular necrosis [Unknown]
